FAERS Safety Report 5410230-8 (Version None)
Quarter: 2007Q3

REPORT INFORMATION
  Report Type: 
  Country: None (occurrence: None)
  Receive Date: 20070713
  Receipt Date: 20070416
  Transmission Date: 20080115
  Serious: No
  Sender: FDA-Public Use
  Company Number: 2007SP001362

PATIENT
  Age: 48 Year
  Sex: Male
  Weight: 108.4097 kg

DRUGS (4)
  1. LUNESTA [Suspect]
     Indication: INSOMNIA
     Dosage: 3 MG; HS; ORAL
     Route: 048
     Dates: start: 20070325, end: 20070408
  2. LUNESTA [Suspect]
     Indication: INSOMNIA
     Dosage: 3 MG; HS; ORAL
     Route: 048
     Dates: start: 20070413, end: 20070415
  3. OXYMETAZOLINE [Concomitant]
  4. ZYRTEC [Concomitant]

REACTIONS (1)
  - BLOOD PRESSURE INCREASED [None]
